APPROVED DRUG PRODUCT: TOBRAMYCIN SULFATE
Active Ingredient: TOBRAMYCIN SULFATE
Strength: EQ 1.2GM BASE/VIAL
Dosage Form/Route: INJECTABLE;INJECTION
Application: A217519 | Product #001
Applicant: EUGIA PHARMA SPECIALITIES LTD
Approved: Jun 21, 2023 | RLD: No | RS: No | Type: DISCN